FAERS Safety Report 8799333 (Version 1)
Quarter: 2012Q4

REPORT INFORMATION
  Report Type: 
  Country: US (occurrence: US)
  Receive Date: 20120919
  Receipt Date: 20120919
  Transmission Date: 20130627
  Serious: Yes (Hospitalization)
  Sender: FDA-Public Use
  Company Number: US-ELI_LILLY_AND_COMPANY-US201209002813

PATIENT

DRUGS (3)
  1. CYMBALTA [Suspect]
     Dosage: 30 mg, unknown
  2. CYMBALTA [Suspect]
     Dosage: 90 mg, unknown
  3. CYMBALTA [Suspect]
     Dosage: 30 mg, unknown

REACTIONS (3)
  - Foetal hypokinesia [Recovered/Resolved]
  - Foetal exposure during pregnancy [Recovered/Resolved]
  - Exposure during breast feeding [Not Recovered/Not Resolved]
